FAERS Safety Report 8809635 (Version 1)
Quarter: 2012Q4

REPORT INFORMATION
  Report Type: 
  Country: US (occurrence: US)
  Receive Date: 20120926
  Receipt Date: 20120926
  Transmission Date: 20130627
  Serious: No
  Sender: FDA-Public Use
  Company Number: US-TEVA-358272USA

PATIENT

DRUGS (1)
  1. PROAIR HFA [Suspect]
     Dosage: unknown
     Route: 055

REACTIONS (1)
  - Drug effect decreased [Unknown]
